FAERS Safety Report 4390825-3 (Version None)
Quarter: 2004Q3

REPORT INFORMATION
  Report Type: 
  Country: None (occurrence: None)
  Receive Date: 20040706
  Receipt Date: 20040706
  Transmission Date: 20050211
  Serious: Yes (Disabling)
  Sender: FDA-Public Use
  Company Number: None

PATIENT
  Age: 20 Year
  Sex: Female
  Weight: 74.3899 kg

DRUGS (3)
  1. ZOLOFT [Suspect]
     Indication: ANXIETY
     Dosage: 100 MG 1 DAY ORAL
     Route: 048
     Dates: start: 20021025, end: 20021220
  2. ZOLOFT [Suspect]
     Indication: DEPRESSION
     Dosage: 100 MG 1 DAY ORAL
     Route: 048
     Dates: start: 20021025, end: 20021220
  3. BUTALBITAL [Concomitant]

REACTIONS (8)
  - ABNORMAL BEHAVIOUR [None]
  - AGGRESSION [None]
  - DRUG EFFECT DECREASED [None]
  - IMPAIRED SELF-CARE [None]
  - MIGRAINE [None]
  - SOCIAL AVOIDANT BEHAVIOUR [None]
  - SUICIDE ATTEMPT [None]
  - WEIGHT INCREASED [None]
